FAERS Safety Report 18452007 (Version 1)
Quarter: 2020Q4

REPORT INFORMATION
  Report Type: Spontaneous
  Country: US (occurrence: US)
  Receive Date: 20201031
  Receipt Date: 20201031
  Transmission Date: 20210114
  Serious: No
  Sender: FDA-Public Use
  Company Number: None

PATIENT
  Age: 71 Year
  Sex: Female
  Weight: 56.25 kg

DRUGS (13)
  1. METOPROLOL. [Concomitant]
     Active Substance: METOPROLOL
  2. ALENDRONATE [Concomitant]
     Active Substance: ALENDRONATE SODIUM
  3. MAGNESIUM [Concomitant]
     Active Substance: MAGNESIUM
  4. ESTRADIOL TRANSDERMAL SYSTEM [Concomitant]
     Active Substance: ESTRADIOL
  5. VITAMIN D [Concomitant]
     Active Substance: VITAMIN D NOS
  6. SELENIUM [Concomitant]
     Active Substance: SELENIUM
  7. CALCIUM [Concomitant]
     Active Substance: CALCIUM
  8. ALENDRONATE SODIUM UPS 70 MG [Suspect]
     Active Substance: ALENDRONATE SODIUM
     Indication: OSTEOPOROSIS
     Dosage: ?          QUANTITY:1 TABLET(S);OTHER FREQUENCY:ONCE WEEKLY;?
     Route: 048
     Dates: start: 20200816, end: 20200816
  9. NP THYROID [Concomitant]
     Active Substance: LEVOTHYROXINE\LIOTHYRONINE
  10. ZINC. [Concomitant]
     Active Substance: ZINC
  11. VITAMIN C [Concomitant]
     Active Substance: ASCORBIC ACID
  12. KRILL OIL [Concomitant]
     Active Substance: DIETARY SUPPLEMENT\KRILL OIL
  13. DOXYCYCLINE. [Concomitant]
     Active Substance: DOXYCYCLINE

REACTIONS (4)
  - Cough [None]
  - Product complaint [None]
  - Throat irritation [None]
  - Product solubility abnormal [None]

NARRATIVE: CASE EVENT DATE: 20200816
